FAERS Safety Report 6015929-0 (Version None)
Quarter: 2008Q4

REPORT INFORMATION
  Report Type: 
  Country: None (occurrence: None)
  Receive Date: 20081219
  Receipt Date: 20081219
  Transmission Date: 20090506
  Serious: No
  Sender: FDA-Public Use
  Company Number: None

PATIENT
  Age: 71 Year
  Sex: Male

DRUGS (1)
  1. VARENICLINE [Suspect]
     Dates: start: 20070604, end: 20070730

REACTIONS (2)
  - RHINITIS [None]
  - SKIN ULCER [None]
